FAERS Safety Report 10608780 (Version 2)
Quarter: 2016Q3

REPORT INFORMATION
  Report Type: Spontaneous
  Country: PT (occurrence: PT)
  Receive Date: 20141125
  Receipt Date: 20160908
  Transmission Date: 20161109
  Serious: Yes (Hospitalization, Other)
  Sender: FDA-Public Use
  Company Number: PT-GLAXOSMITHKLINE-PT2014GSK026288

PATIENT
  Age: 39 Year
  Sex: Male

DRUGS (2)
  1. BUPROPION. [Suspect]
     Active Substance: BUPROPION
     Indication: EX-TOBACCO USER
     Dosage: 300 MG, QD
     Route: 048
  2. GLUCOCORTICOID [Concomitant]
     Active Substance: UNSPECIFIED INGREDIENT
     Indication: PSORIASIS

REACTIONS (10)
  - Nail disorder [Unknown]
  - Oedema [Recovered/Resolved]
  - Acanthosis [Unknown]
  - Onycholysis [Unknown]
  - Parakeratosis [Unknown]
  - Erythrodermic psoriasis [Recovered/Resolved]
  - Psoriasis [Unknown]
  - Erythema [Recovered/Resolved]
  - Rash pustular [Recovered/Resolved]
  - Toxic skin eruption [Unknown]
